FAERS Safety Report 8593823-9 (Version None)
Quarter: 2012Q3

REPORT INFORMATION
  Report Type: 
  Country: None (occurrence: None)
  Receive Date: 20120814
  Receipt Date: 20120809
  Transmission Date: 20120928
  Serious: Yes (Hospitalization)
  Sender: FDA-Public Use
  Company Number: JP-VERTEX PHARMACEUTICALS INC.-AE-2012-012031

PATIENT
  Age: 50 Year
  Sex: Female

DRUGS (3)
  1. TELAVIC (TELAPREVIR) [Suspect]
     Route: 048
     Dates: start: 20120705
  2. REBETOL [Concomitant]
     Route: 048
  3. PEG-INTRON [Concomitant]
     Route: 058

REACTIONS (1)
  - DRUG ERUPTION [None]
